FAERS Safety Report 23248257 (Version 3)
Quarter: 2024Q2

REPORT INFORMATION
  Report Type: Report from Study
  Country: US (occurrence: US)
  Receive Date: 20231130
  Receipt Date: 20240503
  Transmission Date: 20240715
  Serious: Yes (Other)
  Sender: FDA-Public Use
  Company Number: US-AstraZeneca-CH-00519052A

PATIENT
  Sex: Male

DRUGS (2)
  1. ULTOMIRIS [Suspect]
     Active Substance: RAVULIZUMAB-CWVZ
     Indication: Product used for unknown indication
     Dosage: UNK
     Route: 065
  2. SOLIRIS [Suspect]
     Active Substance: ECULIZUMAB
     Indication: Product used for unknown indication
     Dosage: UNK
     Route: 065
     Dates: end: 20231129

REACTIONS (2)
  - Renal failure [Not Recovered/Not Resolved]
  - Vasculitis [Unknown]
